FAERS Safety Report 6522699-6 (Version None)
Quarter: 2009Q4

REPORT INFORMATION
  Report Type: 
  Country: None (occurrence: None)
  Receive Date: 20091224
  Receipt Date: 20091210
  Transmission Date: 20100525
  Serious: Yes (Hospitalization, Other)
  Sender: FDA-Public Use
  Company Number: 1-20982310

PATIENT
  Age: 78 Year
  Sex: Female

DRUGS (1)
  1. WARFARIN SODIUM [Suspect]
     Indication: ATRIAL FIBRILLATION

REACTIONS (4)
  - COORDINATION ABNORMAL [None]
  - MUSCULAR WEAKNESS [None]
  - SPINAL CORD COMPRESSION [None]
  - SUBDURAL HAEMATOMA [None]
